FAERS Safety Report 8585691-6 (Version None)
Quarter: 2012Q3

REPORT INFORMATION
  Report Type: 
  Country: None (occurrence: None)
  Receive Date: 20120802
  Receipt Date: 20120802
  Transmission Date: 20120928
  Serious: Yes (Hospitalization)
  Sender: FDA-Public Use
  Company Number: None

PATIENT
  Sex: Female
  Weight: 141.5223 kg

DRUGS (1)
  1. RITUXAN [Suspect]
     Indication: ANAEMIA HAEMOLYTIC AUTOIMMUNE
     Dosage: 910 MG WEEKLY IV DRIP
     Route: 041
     Dates: start: 20120629, end: 20120706

REACTIONS (3)
  - LEUKOCYTOCLASTIC VASCULITIS [None]
  - SEPSIS [None]
  - HYPOTENSION [None]
